FAERS Safety Report 16894039 (Version 1)
Quarter: 2019Q4

REPORT INFORMATION
  Report Type: Spontaneous
  Country: US (occurrence: US)
  Receive Date: 20191007
  Receipt Date: 20191007
  Transmission Date: 20200122
  Serious: Yes (Life-Threatening, Hospitalization)
  Sender: FDA-Public Use
  Company Number: None

PATIENT
  Age: 59 Year
  Sex: Female
  Weight: 52.62 kg

DRUGS (5)
  1. PEPCID [Suspect]
     Active Substance: FAMOTIDINE
  2. SWABS (DEVICE) [Suspect]
     Active Substance: DEVICE
  3. CHLORHEXIDINE [Suspect]
     Active Substance: CHLORHEXIDINE
  4. ZOFRAN [Suspect]
     Active Substance: ONDANSETRON HYDROCHLORIDE
  5. CANNULA^S (DEVICE) [Suspect]
     Active Substance: DEVICE

REACTIONS (7)
  - Cold sweat [None]
  - Rash [None]
  - Vomiting [None]
  - Dehydration [None]
  - Heart rate increased [None]
  - Urticaria [None]
  - Diarrhoea [None]

NARRATIVE: CASE EVENT DATE: 20170116
